FAERS Safety Report 12756797 (Version 2)
Quarter: 2016Q3

REPORT INFORMATION
  Report Type: Spontaneous
  Country: BR (occurrence: BR)
  Receive Date: 20160917
  Receipt Date: 20160923
  Transmission Date: 20161109
  Serious: Yes (Hospitalization, Other)
  Sender: FDA-Public Use
  Company Number: BR-009507513-1609BRA007184

PATIENT
  Sex: Female
  Weight: 62 kg

DRUGS (2)
  1. MERCILON [Suspect]
     Active Substance: DESOGESTREL\ETHINYL ESTRADIOL
     Dosage: UNK
     Route: 048
     Dates: end: 20160912
  2. MERCILON [Suspect]
     Active Substance: DESOGESTREL\ETHINYL ESTRADIOL
     Indication: CONTRACEPTION
     Dosage: UNK
     Route: 048
     Dates: start: 19990618

REACTIONS (8)
  - Limb operation [Unknown]
  - Coma [Unknown]
  - Amnesia [Recovering/Resolving]
  - Caesarean section [Recovered/Resolved]
  - Maternal exposure before pregnancy [Recovered/Resolved]
  - Weight increased [Recovered/Resolved]
  - Pruritus genital [Unknown]
  - Road traffic accident [Not Recovered/Not Resolved]

NARRATIVE: CASE EVENT DATE: 20120618
